FAERS Safety Report 10265832 (Version 1)
Quarter: 2014Q2

REPORT INFORMATION
  Report Type: Spontaneous
  Country: US (occurrence: None)
  Receive Date: 20140625
  Receipt Date: 20140625
  Transmission Date: 20141212
  Serious: Yes (Life-Threatening)
  Sender: FDA-Public Use
  Company Number: None

PATIENT
  Sex: Male
  Weight: 117.94 kg

DRUGS (4)
  1. RISPERDAL [Suspect]
     Indication: MENTAL DISORDER
     Dates: end: 201312
  2. WATER PILL [Concomitant]
  3. BABY ASPIRIN [Concomitant]
  4. BENDRIYL [Concomitant]

REACTIONS (3)
  - Musculoskeletal disorder [None]
  - Dyspnoea [None]
  - Breast pain [None]
